FAERS Safety Report 23040443 (Version 1)
Quarter: 2023Q4

REPORT INFORMATION
  Report Type: Spontaneous
  Country: US (occurrence: None)
  Receive Date: 20231006
  Receipt Date: 20231006
  Transmission Date: 20240109
  Serious: Yes (Hospitalization)
  Sender: FDA-Public Use
  Company Number: None

PATIENT
  Age: 40 Year
  Sex: Female
  Weight: 71.55 kg

DRUGS (1)
  1. FERAHEME [Suspect]
     Active Substance: FERUMOXYTOL NON-STOICHIOMETRIC MAGNETITE
     Dates: start: 20231005, end: 20231005

REACTIONS (5)
  - Urticaria [None]
  - Dyspnoea [None]
  - Adverse drug reaction [None]
  - Anxiety [None]
  - Infusion related reaction [None]

NARRATIVE: CASE EVENT DATE: 20231005
